FAERS Safety Report 10097576 (Version 1)
Quarter: 2014Q2

REPORT INFORMATION
  Report Type: Spontaneous
  Country: US (occurrence: US)
  Receive Date: 20140423
  Receipt Date: 20140423
  Transmission Date: 20141212
  Serious: No
  Sender: FDA-Public Use
  Company Number: US-BIOGENIDEC-2013BI123541

PATIENT
  Sex: Female
  Weight: 58 kg

DRUGS (23)
  1. TECFIDERA [Suspect]
     Indication: MULTIPLE SCLEROSIS
     Route: 048
     Dates: start: 201309
  2. TECFIDERA [Suspect]
     Indication: MULTIPLE SCLEROSIS
  3. AVONEX [Concomitant]
     Indication: MULTIPLE SCLEROSIS
     Route: 030
     Dates: start: 20140305
  4. RANITIDINE [Concomitant]
  5. HYDROCORTISONE [Concomitant]
  6. BUSPIRONE [Concomitant]
  7. SYNTHROID [Concomitant]
  8. BETAMETHASONE [Concomitant]
  9. ONDANSETRON [Concomitant]
  10. TRAMADOL [Concomitant]
  11. OMEPRAZOLE [Concomitant]
  12. GABAPENTIN [Concomitant]
  13. NEOMYCIN [Concomitant]
  14. FLUOXETINE [Concomitant]
  15. AMOX TR-POTASSIUM CLAV [Concomitant]
  16. GENTAK [Concomitant]
  17. VALACYCLOVIR [Concomitant]
  18. PREMARIN [Concomitant]
  19. ADVAIR [Concomitant]
  20. ECOTRIN [Concomitant]
  21. FISH OIL [Concomitant]
  22. FLONASE [Concomitant]
  23. VITAMIN D [Concomitant]

REACTIONS (3)
  - Gastric disorder [Recovered/Resolved]
  - Dyspepsia [Unknown]
  - Nausea [Unknown]
